FAERS Safety Report 11036884 (Version 3)
Quarter: 2015Q2

REPORT INFORMATION
  Report Type: Report from Study
  Country: NL (occurrence: NL)
  Receive Date: 20150416
  Receipt Date: 20150511
  Transmission Date: 20150821
  Serious: Yes (Hospitalization)
  Sender: FDA-Public Use
  Company Number: NL-ROCHE-1564480

PATIENT
  Age: 71 Year
  Sex: Male
  Weight: 85 kg

DRUGS (6)
  1. OXALIPLATIN. [Suspect]
     Active Substance: OXALIPLATIN
     Indication: GASTRIC CANCER
     Dosage: LAST DOSE ON: 03/SEP/2014 CUMULATIVE DOSE: 211 MG
     Route: 042
     Dates: start: 20140430
  2. TRASTUZUMAB [Suspect]
     Active Substance: TRASTUZUMAB
     Indication: GASTRIC CANCER
     Dosage: LAST DOSE ON: 22/APR/2015 CUMULATIVE DOSE: 510 MG
     Route: 042
     Dates: start: 20140430
  3. FLUOROURACIL. [Concomitant]
     Active Substance: FLUOROURACIL
     Route: 065
     Dates: start: 20150428, end: 20150429
  4. BEVACIZUMAB [Suspect]
     Active Substance: BEVACIZUMAB
     Indication: GASTRIC CANCER
     Dosage: LAST DOSE ON:  22/APR/2015 CUMULATIVE DOSE : 640 MG
     Route: 042
     Dates: start: 20140430
  5. CAPECITABINE. [Suspect]
     Active Substance: CAPECITABINE
     Indication: GASTRIC CANCER
     Dosage: LAST DOSE ON:  22/APR/2015 CUMULATIVE DOSE: 4000 MG
     Route: 048
     Dates: start: 20140430
  6. DOCETAXEL. [Suspect]
     Active Substance: DOCETAXEL
     Indication: GASTRIC CANCER
     Dosage: LAST DOSE ON: 03/SEP/2014 CUMULATIVE DOSE: 105 MG
     Route: 042
     Dates: start: 20140430

REACTIONS (2)
  - Pneumonitis [Recovered/Resolved]
  - Pneumonia [Recovered/Resolved]

NARRATIVE: CASE EVENT DATE: 20150414
